FAERS Safety Report 12558330 (Version 3)
Quarter: 2016Q4

REPORT INFORMATION
  Report Type: Report from Study
  Country: US (occurrence: US)
  Receive Date: 20160714
  Receipt Date: 20161004
  Transmission Date: 20170207
  Serious: Yes (Other)
  Sender: FDA-Public Use
  Company Number: US-SA-2015SA190453

PATIENT
  Age: 94 Year
  Sex: Male
  Weight: 70.3 kg

DRUGS (9)
  1. ALIROCUMAB PREFILLED PEN [Concomitant]
     Active Substance: ALIROCUMAB
     Indication: HYPERLIPIDAEMIA
     Dosage: UNDER THE SKIN
     Route: 058
  2. ALIROCUMAB PREFILLED PEN [Concomitant]
     Active Substance: ALIROCUMAB
     Indication: BLOOD CHOLESTEROL INCREASED
     Dosage: UNDER THE SKIN
     Route: 058
  3. PRILOSEC [Concomitant]
     Active Substance: OMEPRAZOLE MAGNESIUM
  4. PRALUENT [Suspect]
     Active Substance: ALIROCUMAB
     Indication: HYPERLIPIDAEMIA
     Dosage: DOSE:75 MILLIGRAM(S)/MILLILITRE
     Route: 058
  5. PRALUENT [Suspect]
     Active Substance: ALIROCUMAB
     Indication: BLOOD CHOLESTEROL INCREASED
     Dosage: DOSE:75 MILLIGRAM(S)/MILLILITRE
     Route: 058
     Dates: start: 20150810, end: 20151110
  6. PRALUENT [Suspect]
     Active Substance: ALIROCUMAB
     Indication: HYPERLIPIDAEMIA
     Dosage: DOSE:75 MILLIGRAM(S)/MILLILITRE
     Route: 058
     Dates: start: 20150810, end: 20151110
  7. PRALUENT [Suspect]
     Active Substance: ALIROCUMAB
     Indication: BLOOD CHOLESTEROL INCREASED
     Dosage: DOSE:75 MILLIGRAM(S)/MILLILITRE
     Route: 058
  8. ALIROCUMAB PREFILLED PEN [Concomitant]
     Active Substance: ALIROCUMAB
     Indication: HYPERLIPIDAEMIA
     Dosage: UNDER THE SKIN
     Route: 058
     Dates: start: 20150810, end: 20151110
  9. ALIROCUMAB PREFILLED PEN [Concomitant]
     Active Substance: ALIROCUMAB
     Indication: BLOOD CHOLESTEROL INCREASED
     Dosage: UNDER THE SKIN
     Route: 058
     Dates: start: 20150810, end: 20151110

REACTIONS (26)
  - Fatigue [Not Recovered/Not Resolved]
  - Fall [Unknown]
  - Chromaturia [Unknown]
  - Nausea [Unknown]
  - Pyrexia [Unknown]
  - Muscle spasms [Unknown]
  - Fatigue [Unknown]
  - Pruritus [Unknown]
  - Pain [Unknown]
  - Asthenia [Not Recovered/Not Resolved]
  - Feeling hot [Not Recovered/Not Resolved]
  - Ocular hyperaemia [Unknown]
  - Limb discomfort [Recovering/Resolving]
  - Hyperhidrosis [Not Recovered/Not Resolved]
  - Rash erythematous [Unknown]
  - Wrist fracture [Unknown]
  - Hip fracture [Unknown]
  - Influenza like illness [Not Recovered/Not Resolved]
  - Immobile [Recovering/Resolving]
  - Lethargy [Not Recovered/Not Resolved]
  - Flushing [Unknown]
  - Mouth ulceration [Unknown]
  - Oropharyngeal pain [Unknown]
  - Feeling cold [Not Recovered/Not Resolved]
  - Asthenia [Unknown]
  - Throat irritation [Unknown]

NARRATIVE: CASE EVENT DATE: 2015
